FAERS Safety Report 6547350-0 (Version None)
Quarter: 2010Q1

REPORT INFORMATION
  Report Type: 
  Country: None (occurrence: None)
  Receive Date: 20100122
  Receipt Date: 20100112
  Transmission Date: 20100710
  Serious: Yes (Hospitalization, Disabling)
  Sender: FDA-Public Use
  Company Number: US-ROCHE-396658

PATIENT
  Sex: Female
  Weight: 52.2 kg

DRUGS (9)
  1. ACCUTANE [Suspect]
     Indication: ACNE
     Route: 048
     Dates: start: 19991227, end: 20000328
  2. ACCUTANE [Suspect]
     Route: 048
     Dates: start: 20000328, end: 20000404
  3. ACCUTANE [Suspect]
     Route: 048
     Dates: start: 20000404, end: 20000601
  4. ADDERALL 10 [Concomitant]
     Route: 048
  5. ZOLOFT [Concomitant]
     Indication: DEPRESSION
     Route: 048
  6. RITALIN [Concomitant]
     Route: 048
     Dates: end: 19950701
  7. PAXIL [Concomitant]
     Dates: end: 19950701
  8. PROZAC [Concomitant]
     Dates: start: 19950716
  9. WELLBUTRIN [Concomitant]
     Dates: start: 19951222

REACTIONS (12)
  - BLOOD TRIGLYCERIDES INCREASED [None]
  - COLITIS [None]
  - CROHN'S DISEASE [None]
  - DECREASED APPETITE [None]
  - FATIGUE [None]
  - GASTROINTESTINAL DISORDER [None]
  - HAEMATOCRIT DECREASED [None]
  - ILEITIS [None]
  - INFLAMMATORY BOWEL DISEASE [None]
  - INTESTINAL HAEMORRHAGE [None]
  - MULTI-ORGAN DISORDER [None]
  - RECTAL HAEMORRHAGE [None]
